FAERS Safety Report 10220561 (Version 1)
Quarter: 2014Q2

REPORT INFORMATION
  Report Type: Spontaneous
  Country: US (occurrence: None)
  Receive Date: 20140605
  Receipt Date: 20140605
  Transmission Date: 20141212
  Serious: Yes (Other)
  Sender: FDA-Public Use
  Company Number: None

PATIENT
  Age: 32 Year
  Sex: Female
  Weight: 60.33 kg

DRUGS (7)
  1. GLIPIZIDE [Suspect]
     Indication: DIABETES MELLITUS
     Dosage: 5MG 1 PILL 1XDAILY BY MOUTH
     Route: 048
     Dates: start: 20140520, end: 20140521
  2. OXYCODONE [Concomitant]
  3. XANAX [Concomitant]
  4. ZANAFLEX [Concomitant]
  5. NEUROTIN [Concomitant]
  6. ONGLYZA [Concomitant]
  7. GOODY POWERS FOR OCCASIONAL TOOTH + HEAD ACHE [Concomitant]

REACTIONS (1)
  - Convulsion [None]
